FAERS Safety Report 7999691-8 (Version None)
Quarter: 2011Q4

REPORT INFORMATION
  Report Type: 
  Country: None (occurrence: None)
  Receive Date: 20111221
  Receipt Date: 20111212
  Transmission Date: 20120403
  Serious: Yes (Other)
  Sender: FDA-Public Use
  Company Number: US-ASTRAZENECA-2011SE75324

PATIENT
  Sex: Female

DRUGS (13)
  1. TRILEPTAL [Suspect]
     Route: 065
  2. TOPROL-XL [Suspect]
     Indication: BLOOD PRESSURE
     Route: 048
  3. ASPIRIN [Concomitant]
  4. SIMVASTATIN [Concomitant]
     Indication: BLOOD CHOLESTEROL
  5. AMLODIPINE [Concomitant]
     Indication: BLOOD PRESSURE
  6. BENAZEPRIL HYDROCHLORIDE [Concomitant]
  7. OMEPRAZOLE [Suspect]
     Route: 048
  8. ZOLOFT [Concomitant]
  9. CARBATRATINE [Concomitant]
  10. LEVOTHYROXINE SODIUM [Concomitant]
     Indication: THYROID DISORDER
  11. STOOL SOFTENER [Concomitant]
  12. MELOXICAM [Concomitant]
  13. SEROQUEL [Suspect]
     Indication: BIPOLAR DISORDER
     Route: 048

REACTIONS (11)
  - DRUG INTOLERANCE [None]
  - HEADACHE [None]
  - SCIATICA [None]
  - INTERVERTEBRAL DISC DISORDER [None]
  - HYPERSOMNIA [None]
  - CONFUSIONAL STATE [None]
  - FACIAL PAIN [None]
  - NAUSEA [None]
  - LIP PAIN [None]
  - IRRITABILITY [None]
  - NERVOUSNESS [None]
